FAERS Safety Report 21056245 (Version 11)
Quarter: 2025Q1

REPORT INFORMATION
  Report Type: Spontaneous
  Country: CA (occurrence: CA)
  Receive Date: 20220708
  Receipt Date: 20250320
  Transmission Date: 20250408
  Serious: Yes (Other)
  Sender: AUROBINDO
  Company Number: CA-AUROBINDO-AUR-APL-2022-024605

PATIENT
  Age: 23 Year
  Sex: Female

DRUGS (34)
  1. CEFUROXIME [Suspect]
     Active Substance: CEFUROXIME
     Indication: Tooth infection
     Route: 065
  2. CEFUROXIME [Suspect]
     Active Substance: CEFUROXIME
     Indication: Febrile neutropenia
  3. CEFUROXIME [Suspect]
     Active Substance: CEFUROXIME
     Indication: Pericoronitis
  4. METRONIDAZOLE [Suspect]
     Active Substance: METRONIDAZOLE
     Indication: Tooth infection
     Route: 065
  5. METRONIDAZOLE [Suspect]
     Active Substance: METRONIDAZOLE
     Indication: Febrile neutropenia
  6. METRONIDAZOLE [Suspect]
     Active Substance: METRONIDAZOLE
     Indication: Pericoronitis
  7. AMPHOTERICIN B [Suspect]
     Active Substance: AMPHOTERICIN B
     Indication: Antifungal prophylaxis
     Route: 065
  8. AMPHOTERICIN B [Suspect]
     Active Substance: AMPHOTERICIN B
     Indication: Febrile neutropenia
  9. BETAMETHASONE [Suspect]
     Active Substance: BETAMETHASONE
     Indication: Maternal therapy to enhance foetal lung maturity
     Route: 030
  10. BETAMETHASONE [Suspect]
     Active Substance: BETAMETHASONE
     Route: 030
  11. BETAMETHASONE [Suspect]
     Active Substance: BETAMETHASONE
     Route: 064
  12. CYTARABINE [Suspect]
     Active Substance: CYTARABINE
     Indication: Acute myeloid leukaemia
     Dosage: 100 MILLIGRAM/SQ. METER, ONCE A DAY
     Route: 042
  13. CYTARABINE [Suspect]
     Active Substance: CYTARABINE
     Indication: Drug therapy
     Route: 037
  14. CYTARABINE [Suspect]
     Active Substance: CYTARABINE
     Route: 042
  15. CYTARABINE [Suspect]
     Active Substance: CYTARABINE
     Dosage: 1000 MILLIGRAM/SQ. METER, ONCE A DAY
     Route: 042
  16. DAUNORUBICIN [Suspect]
     Active Substance: DAUNORUBICIN
     Indication: Acute myeloid leukaemia
     Route: 065
  17. DAUNORUBICIN [Suspect]
     Active Substance: DAUNORUBICIN
     Indication: Acute myeloid leukaemia
     Route: 065
  18. DAUNORUBICIN HYDROCHLORIDE [Suspect]
     Active Substance: DAUNORUBICIN HYDROCHLORIDE
     Indication: Acute myeloid leukaemia
     Route: 042
  19. DINOPROSTONE [Suspect]
     Active Substance: DINOPROSTONE
     Indication: Induction of cervix ripening
     Route: 067
  20. IRON [Suspect]
     Active Substance: IRON
     Indication: Mineral supplementation
     Route: 065
  21. IRON [Suspect]
     Active Substance: IRON
     Indication: Supplementation therapy
  22. MAGNESIUM [Suspect]
     Active Substance: MAGNESIUM
     Indication: Nervous system disorder prophylaxis
     Route: 042
  23. MAGNESIUM ASPARTATE [Suspect]
     Active Substance: MAGNESIUM ASPARTATE
     Indication: Product used for unknown indication
     Route: 065
  24. MAGNESIUM CHLORIDE [Suspect]
     Active Substance: MAGNESIUM CHLORIDE
     Indication: Nervous system disorder
     Route: 042
  25. MAGNESIUM CHLORIDE [Suspect]
     Active Substance: MAGNESIUM CHLORIDE
     Indication: Prophylaxis
  26. MEROPENEM [Suspect]
     Active Substance: MEROPENEM
     Indication: Tooth infection
     Route: 042
  27. MEROPENEM [Suspect]
     Active Substance: MEROPENEM
     Indication: Febrile neutropenia
  28. MEROPENEM [Suspect]
     Active Substance: MEROPENEM
     Indication: Pericoronitis
  29. MEROPENEM [Suspect]
     Active Substance: MEROPENEM
     Indication: Tooth infection
     Route: 065
  30. MEROPENEM [Suspect]
     Active Substance: MEROPENEM
     Indication: Febrile neutropenia
  31. MEROPENEM [Suspect]
     Active Substance: MEROPENEM
     Indication: Pericoronitis
  32. OXYTOCIN [Suspect]
     Active Substance: OXYTOCIN
     Indication: Labour induction
     Route: 042
  33. MINERALS\VITAMINS [Suspect]
     Active Substance: MINERALS\VITAMINS
     Indication: Vitamin supplementation
     Route: 065
  34. VITAMINS NOS [Suspect]
     Active Substance: VITAMINS
     Indication: Vitamin supplementation
     Route: 065

REACTIONS (9)
  - Delivery [Recovered/Resolved]
  - Exposure during pregnancy [Recovered/Resolved]
  - Febrile neutropenia [Recovered/Resolved]
  - Maternal exposure during pregnancy [Recovered/Resolved]
  - Pericoronitis [Recovered/Resolved]
  - Premature delivery [Unknown]
  - Tooth infection [Recovered/Resolved]
  - Off label use [Recovered/Resolved]
  - Product use in unapproved indication [Unknown]
